FAERS Safety Report 9147828 (Version 1)
Quarter: 2013Q1

REPORT INFORMATION
  Report Type: Spontaneous
  Country: US (occurrence: US)
  Receive Date: 20130307
  Receipt Date: 20130307
  Transmission Date: 20140127
  Serious: No
  Sender: FDA-Public Use
  Company Number: US-TEVA-390240USA

PATIENT
  Sex: Female
  Weight: 74.91 kg

DRUGS (8)
  1. COPAXONE [Suspect]
     Indication: MULTIPLE SCLEROSIS
     Dosage: 20 MILLIGRAM DAILY;
     Route: 058
     Dates: start: 200806
  2. AMLODIPINE [Concomitant]
     Dosage: 5 MILLIGRAM DAILY;
     Route: 048
  3. ASPIRIN [Concomitant]
     Dosage: 81 MILLIGRAM DAILY;
     Route: 048
  4. BENAZEPRIL [Concomitant]
     Dosage: 40 MILLIGRAM DAILY;
     Route: 048
  5. CARVEDILOL [Concomitant]
     Dosage: 6.25 MILLIGRAM DAILY;
     Route: 048
  6. FLONASE [Concomitant]
     Dosage: 100 MICROGRAM DAILY;
     Route: 055
  7. PRAVASTATIN [Concomitant]
     Dosage: 10 MILLIGRAM DAILY;
     Route: 048
  8. SINGULAIR [Concomitant]
     Dosage: 10 MILLIGRAM DAILY;
     Route: 048

REACTIONS (1)
  - Blood glucose increased [Not Recovered/Not Resolved]
